FAERS Safety Report 8478546-9 (Version None)
Quarter: 2012Q2

REPORT INFORMATION
  Report Type: 
  Country: None (occurrence: None)
  Receive Date: 20120629
  Receipt Date: 20120620
  Transmission Date: 20120825
  Serious: Yes (Hospitalization)
  Sender: FDA-Public Use
  Company Number: CA-JNJFOC-20120610573

PATIENT
  Sex: Male
  Weight: 90 kg

DRUGS (5)
  1. REMICADE [Suspect]
     Route: 042
     Dates: start: 20101001
  2. PREDNISONE [Concomitant]
     Route: 048
  3. REMICADE [Suspect]
     Route: 042
     Dates: start: 20101001
  4. IMURAN [Concomitant]
     Route: 048
  5. REMICADE [Suspect]
     Indication: CROHN'S DISEASE
     Dosage: 16TH DOSE
     Route: 042
     Dates: start: 20120525

REACTIONS (3)
  - ABDOMINAL PAIN [None]
  - VOMITING [None]
  - NAUSEA [None]
